FAERS Safety Report 8541415-X (Version None)
Quarter: 2012Q3

REPORT INFORMATION
  Report Type: 
  Country: None (occurrence: None)
  Receive Date: 20120726
  Receipt Date: 20120717
  Transmission Date: 20120928
  Serious: Yes (Hospitalization)
  Sender: FDA-Public Use
  Company Number: US-ELI_LILLY_AND_COMPANY-US201111003624

PATIENT
  Sex: Female
  Weight: 41.28 kg

DRUGS (12)
  1. FORTEO [Suspect]
     Dosage: 20 UG, QD
     Route: 065
  2. FORTEO [Suspect]
     Dosage: 20 UG, QD
     Route: 065
  3. FORTEO [Suspect]
     Dosage: 20 UG, QD
     Route: 065
     Dates: start: 20111028
  4. FORTEO [Suspect]
     Indication: OSTEOPOROSIS
     Dosage: 20 UG, QD
     Route: 065
     Dates: start: 20111025
  5. FORTEO [Suspect]
     Dosage: 20 UG, QD
     Route: 065
  6. CHLORDIAZEPOXIDE [Concomitant]
     Dosage: UNK
  7. FORTEO [Suspect]
     Dosage: 20 UG, QD
     Route: 065
  8. GABAPENTIN [Concomitant]
     Dosage: UNK
  9. RISPERIDONE [Concomitant]
     Dosage: UNK
  10. AZOR [Concomitant]
     Dosage: UNK
  11. FORTEO [Suspect]
     Dosage: 20 UG, QD
     Route: 065
  12. INTERFERON [Concomitant]
     Dosage: UNK

REACTIONS (28)
  - GENITAL INFECTION VIRAL [None]
  - MYALGIA [None]
  - INJECTION SITE ERYTHEMA [None]
  - GAIT DISTURBANCE [None]
  - GASTRIC DISORDER [None]
  - GENITAL DISCOMFORT [None]
  - ABDOMINAL PAIN UPPER [None]
  - NERVOUSNESS [None]
  - ANAL HAEMORRHAGE [None]
  - FEAR OF NEEDLES [None]
  - PAIN [None]
  - MUSCLE SPASMS [None]
  - GENITAL PAIN [None]
  - SOMNOLENCE [None]
  - MUSCULAR WEAKNESS [None]
  - FEELING ABNORMAL [None]
  - ABDOMINAL DISCOMFORT [None]
  - TREMOR [None]
  - INJECTION SITE PAIN [None]
  - CONTUSION [None]
  - CHEST PAIN [None]
  - INJECTION SITE HAEMATOMA [None]
  - RECTAL PROLAPSE [None]
  - ALOPECIA [None]
  - HEARING IMPAIRED [None]
  - MASS [None]
  - INJURY ASSOCIATED WITH DEVICE [None]
  - ASTHENIA [None]
